FAERS Safety Report 4538032-5 (Version None)
Quarter: 2004Q4

REPORT INFORMATION
  Report Type: 
  Country: None (occurrence: None)
  Receive Date: 20041223
  Receipt Date: 20041223
  Transmission Date: 20050328
  Serious: Yes (Hospitalization)
  Sender: FDA-Public Use
  Company Number: None

PATIENT
  Sex: Female
  Weight: 72.5755 kg

DRUGS (5)
  1. CLARITIN-D 24 HOUR [Suspect]
     Indication: MULTIPLE ALLERGIES
     Dosage: 1 PILL 1 DAILY ORAL
     Route: 048
  2. CLARITIN-D 24 HOUR [Suspect]
     Indication: SINUS DISORDER
     Dosage: 1 PILL 1 DAILY ORAL
     Route: 048
  3. ALEVE [Concomitant]
  4. PREMARIN [Concomitant]
  5. ADVIL COLD AND SINUS [Concomitant]

REACTIONS (3)
  - ANXIETY [None]
  - CARDIAC FLUTTER [None]
  - CHEST PAIN [None]
